FAERS Safety Report 9748823 (Version 2)
Quarter: 2013Q4

REPORT INFORMATION
  Report Type: Spontaneous
  Country: US (occurrence: US)
  Receive Date: 20131212
  Receipt Date: 20131220
  Transmission Date: 20140711
  Serious: Yes (Death, Other)
  Sender: FDA-Public Use
  Company Number: US-INCYTE CORPORATION-2013IN001944

PATIENT
  Age: 78 Year
  Sex: Male

DRUGS (9)
  1. JAKAFI [Suspect]
     Indication: MYELOFIBROSIS
     Dosage: 15 MG, QD
     Route: 048
     Dates: start: 20121024, end: 20130611
  2. HYDREA [Concomitant]
  3. ATENOLOL [Concomitant]
  4. FLOMAX                             /00889901/ [Concomitant]
  5. LASIX                              /00032601/ [Concomitant]
  6. POTASSIUM [Concomitant]
  7. BACTROBAN                          /00753901/ [Concomitant]
  8. NITROSTAT [Concomitant]
  9. LIBRIUM                            /00011501/ [Concomitant]

REACTIONS (3)
  - Sepsis [Fatal]
  - Disease progression [Fatal]
  - Platelet count decreased [Unknown]
